FAERS Safety Report 7712982-0 (Version None)
Quarter: 2011Q3

REPORT INFORMATION
  Report Type: 
  Country: None (occurrence: None)
  Receive Date: 20110826
  Receipt Date: 20110824
  Transmission Date: 20111222
  Serious: Yes (Death, Hospitalization)
  Sender: FDA-Public Use
  Company Number: US-CEPHALON-2011004455

PATIENT
  Sex: Male
  Weight: 93 kg

DRUGS (1)
  1. ARSENIC TRIOXIDE [Suspect]
     Indication: MYELOFIBROSIS
     Route: 048
     Dates: start: 20101229, end: 20110802

REACTIONS (4)
  - BACTERAEMIA [None]
  - SEPSIS [None]
  - DEATH [None]
  - RESPIRATORY FAILURE [None]
